FAERS Safety Report 9527823 (Version 1)
Quarter: 2013Q1

REPORT INFORMATION
  Report Type: Spontaneous
  Country: US (occurrence: None)
  Receive Date: 20130313
  Receipt Date: 20130313
  Transmission Date: 20140127
  Serious: Yes (Other)
  Sender: FDA-Public Use
  Company Number: 1000027228

PATIENT
  Age: 47 Year
  Sex: Male

DRUGS (2)
  1. SAVELLA [Suspect]
     Indication: FIBROMYALGIA
     Dosage: 12.5 MG (12.5 MG,1 IN 1 D)
     Dates: start: 20111026, end: 20111026
  2. SAVELLA [Suspect]
     Indication: FIBROMYALGIA
     Dosage: 50 MG, BID (50 MG,2 IN 1 D)
     Dates: start: 20111102

REACTIONS (3)
  - Suicidal ideation [None]
  - Depression [None]
  - Gynaecomastia [None]
